FAERS Safety Report 9741407 (Version 4)
Quarter: 2014Q3

REPORT INFORMATION
  Report Type: Spontaneous
  Country: JP (occurrence: JP)
  Receive Date: 20131209
  Receipt Date: 20140916
  Transmission Date: 20150326
  Serious: Yes (Life-Threatening, Hospitalization)
  Sender: FDA-Public Use
  Company Number: PHHY2013JP142776

PATIENT
  Age: 44 Year
  Sex: Male

DRUGS (4)
  1. NEORAL [Suspect]
     Active Substance: CYCLOSPORINE
     Indication: PSORIATIC ARTHROPATHY
     Dosage: UNK
     Route: 048
     Dates: start: 201207, end: 20121008
  2. INSULIN [Concomitant]
     Active Substance: INSULIN NOS
     Indication: DIABETES MELLITUS
     Route: 058
     Dates: start: 2010
  3. METHOTREXATE [Suspect]
     Active Substance: METHOTREXATE
     Indication: PSORIATIC ARTHROPATHY
     Route: 048
  4. NEORAL [Suspect]
     Active Substance: CYCLOSPORINE
     Indication: SKIN DISORDER

REACTIONS (8)
  - Hypoglycaemia [Recovered/Resolved]
  - Infusion site erythema [Unknown]
  - Rash [Recovering/Resolving]
  - Abscess [Unknown]
  - Infusion site swelling [Unknown]
  - Staphylococcal infection [Recovering/Resolving]
  - Necrotising fasciitis [Recovered/Resolved]
  - Dermatitis exfoliative [Unknown]

NARRATIVE: CASE EVENT DATE: 20120930
